FAERS Safety Report 12529592 (Version 1)
Quarter: 2016Q3

REPORT INFORMATION
  Report Type: Spontaneous
  Country: US (occurrence: US)
  Receive Date: 20160706
  Receipt Date: 20160706
  Transmission Date: 20161109
  Serious: No
  Sender: FDA-Public Use
  Company Number: US-TEVA-649463USA

PATIENT
  Sex: Female

DRUGS (1)
  1. TRAMADOL. [Suspect]
     Active Substance: TRAMADOL
     Dosage: 50 MILLIGRAM DAILY;

REACTIONS (4)
  - Drug effect decreased [Unknown]
  - Flushing [Unknown]
  - Adverse event [Unknown]
  - Feeling hot [Unknown]
